FAERS Safety Report 4697373-1 (Version None)
Quarter: 2005Q2

REPORT INFORMATION
  Report Type: 
  Country: None (occurrence: None)
  Receive Date: 20050621
  Receipt Date: 20050606
  Transmission Date: 20051028
  Serious: Yes (Other)
  Sender: FDA-Public Use
  Company Number: US_0506118313

PATIENT
  Sex: Female

DRUGS (2)
  1. EVISTA [Suspect]
     Dosage: 60 MG DAY
     Dates: start: 20000101
  2. THYROID TAB [Concomitant]

REACTIONS (4)
  - BLOOD THYROID STIMULATING HORMONE INCREASED [None]
  - BREAST CANCER FEMALE [None]
  - DEPRESSION [None]
  - FATIGUE [None]
